FAERS Safety Report 4743939-X (Version None)
Quarter: 2005Q3

REPORT INFORMATION
  Report Type: 
  Country: None (occurrence: None)
  Receive Date: 20050809
  Receipt Date: 20050718
  Transmission Date: 20060218
  Serious: Yes (Other)
  Sender: FDA-Public Use
  Company Number: 008#1#2005-00005

PATIENT
  Age: 73 Year
  Sex: Male

DRUGS (1)
  1. ALPROSTADIL [Suspect]
     Indication: ATHEROSCLEROSIS OBLITERANS
     Dosage: 60 MG (60 MCG 1 IN 1 DAY(S))
     Route: 041
     Dates: start: 20050704, end: 20050710

REACTIONS (2)
  - INFUSION RELATED REACTION [None]
  - PYREXIA [None]
